FAERS Safety Report 17086681 (Version 1)
Quarter: 2019Q4

REPORT INFORMATION
  Report Type: Spontaneous
  Country: CA (occurrence: CA)
  Receive Date: 20191128
  Receipt Date: 20191128
  Transmission Date: 20200122
  Serious: Yes (Hospitalization)
  Sender: FDA-Public Use
  Company Number: CA-AUROBINDO-AUR-APL-2019-075060

PATIENT
  Age: 50 Year
  Sex: Female
  Weight: 99 kg

DRUGS (1)
  1. GABAPENTIN CAPSULES [Suspect]
     Active Substance: GABAPENTIN
     Indication: EPICONDYLITIS
     Dosage: 200 MILLIGRAM, ONCE
     Route: 048

REACTIONS (3)
  - Tremor [Recovered/Resolved]
  - Hypoaesthesia [Recovered/Resolved]
  - Myoclonus [Recovered/Resolved]
